FAERS Safety Report 24543775 (Version 2)
Quarter: 2024Q4

REPORT INFORMATION
  Report Type: Spontaneous
  Country: IL (occurrence: IL)
  Receive Date: 20241024
  Receipt Date: 20241030
  Transmission Date: 20250115
  Serious: Yes (Hospitalization, Other)
  Sender: RANBAXY
  Company Number: IL-SUN PHARMACEUTICAL INDUSTRIES LTD-2024R1-473721

PATIENT
  Age: 29 Year
  Sex: Female

DRUGS (2)
  1. DEXAMETHASONE [Suspect]
     Active Substance: DEXAMETHASONE
     Indication: Aplastic anaemia
     Dosage: 400 MILLIGRAM, DAILY
     Route: 048
  2. CYCLOSPORINE [Interacting]
     Active Substance: CYCLOSPORINE
     Indication: Aplastic anaemia
     Dosage: 400 MILLIGRAM, DAILY
     Route: 048

REACTIONS (6)
  - Drug interaction [Unknown]
  - Drug clearance decreased [Unknown]
  - Staphylococcal bacteraemia [Unknown]
  - Clonic convulsion [Unknown]
  - Toxicity to various agents [Unknown]
  - Posterior reversible encephalopathy syndrome [Not Recovered/Not Resolved]
